FAERS Safety Report 5190673-0 (Version None)
Quarter: 2006Q4

REPORT INFORMATION
  Report Type: 
  Country: None (occurrence: None)
  Receive Date: 20061222
  Receipt Date: 20061115
  Transmission Date: 20070319
  Serious: No
  Sender: FDA-Public Use
  Company Number: US-BRISTOL-MYERS SQUIBB COMPANY-13579966

PATIENT
  Age: 57 Year
  Sex: Female
  Weight: 99 kg

DRUGS (7)
  1. ORENCIA [Suspect]
     Indication: RHEUMATOID ARTHRITIS
     Route: 042
     Dates: start: 20060101
  2. PREDNISONE TAB [Concomitant]
  3. PLAQUENIL [Concomitant]
  4. CLARITIN [Concomitant]
  5. NORVASC [Concomitant]
  6. SINGULAIR [Concomitant]
  7. 5-HTP [Concomitant]

REACTIONS (5)
  - ABDOMINAL PAIN LOWER [None]
  - FAECES DISCOLOURED [None]
  - JOINT SWELLING [None]
  - MUSCLE SPASMS [None]
  - OEDEMA PERIPHERAL [None]
